FAERS Safety Report 18377757 (Version 3)
Quarter: 2020Q4

REPORT INFORMATION
  Report Type: Spontaneous
  Country: BE (occurrence: BE)
  Receive Date: 20201013
  Receipt Date: 20201106
  Transmission Date: 20210114
  Serious: Yes (Hospitalization, Other)
  Sender: FDA-Public Use
  Company Number: BE-SA-2020SA280933

PATIENT

DRUGS (1)
  1. LEMTRADA [Suspect]
     Active Substance: ALEMTUZUMAB
     Dosage: UNK
     Dates: start: 20200106, end: 20200110

REACTIONS (2)
  - Disease recurrence [Unknown]
  - Epilepsy [Unknown]

NARRATIVE: CASE EVENT DATE: 2020
